FAERS Safety Report 7365481-2 (Version None)
Quarter: 2011Q1

REPORT INFORMATION
  Report Type: 
  Country: None (occurrence: None)
  Receive Date: 20110322
  Receipt Date: 20101007
  Transmission Date: 20110831
  Serious: Yes (Other)
  Sender: FDA-Public Use
  Company Number: US-BAYER-201018202NA

PATIENT
  Sex: Female
  Weight: 78 kg

DRUGS (15)
  1. YASMIN [Suspect]
     Indication: BLOOD CHOLESTEROL DECREASED
     Dosage: UNK UNK, QD
     Route: 048
     Dates: start: 20050101, end: 20080908
  2. LIPITOR [Concomitant]
     Indication: BLOOD CHOLESTEROL INCREASED
     Dosage: 10 MG, QD
     Dates: start: 20060101
  3. PRILOSEC [Concomitant]
     Indication: GASTROOESOPHAGEAL REFLUX DISEASE
     Route: 048
     Dates: start: 20060101
  4. PROTONIX [Concomitant]
     Dosage: 40 MG, QD
  5. CECLOR [Concomitant]
     Dosage: UNK
     Dates: start: 20061201
  6. YAZ [Suspect]
     Indication: ORAL CONTRACEPTION
     Route: 048
     Dates: start: 20050101, end: 20080301
  7. FLONASE [Concomitant]
     Indication: MULTIPLE ALLERGIES
     Dates: start: 20050101
  8. FISH OIL [Concomitant]
     Indication: BLOOD CHOLESTEROL DECREASED
     Dates: start: 20080101
  9. ADVIL LIQUI-GELS [Concomitant]
  10. SINGULAIR [Concomitant]
     Dosage: 10 MG, PRN
     Route: 048
  11. SYNTHROID [Concomitant]
     Indication: THYROID DISORDER
     Dosage: 0.075 MG, QD
     Route: 048
     Dates: start: 20050101
  12. ZYRTEC [Concomitant]
     Indication: MULTIPLE ALLERGIES
     Dosage: UNK UNK, PRN
     Route: 048
     Dates: start: 20050101
  13. MULTI-VITAMIN [Concomitant]
     Dosage: UNK UNK, QD
     Route: 048
  14. ZOCOR [Concomitant]
     Indication: BLOOD CHOLESTEROL DECREASED
  15. PROBIOTICS [Concomitant]

REACTIONS (10)
  - ABDOMINAL PAIN [None]
  - ABDOMINAL DISCOMFORT [None]
  - CHEST PAIN [None]
  - APHAGIA [None]
  - GALLBLADDER CHOLESTEROLOSIS [None]
  - CHOLECYSTITIS CHRONIC [None]
  - ABDOMINAL DISTENSION [None]
  - GALLBLADDER NON-FUNCTIONING [None]
  - BILIARY DYSKINESIA [None]
  - NAUSEA [None]
